FAERS Safety Report 24687079 (Version 1)
Quarter: 2024Q4

REPORT INFORMATION
  Report Type: Spontaneous
  Country: US (occurrence: None)
  Receive Date: 20241130
  Receipt Date: 20241130
  Transmission Date: 20250115
  Serious: Yes (Life-Threatening, Hospitalization, Disabling, Other)
  Sender: Public
  Company Number: None

PATIENT
  Age: 57 Year
  Sex: Female
  Weight: 126.9 kg

DRUGS (22)
  1. PREMPRO [Suspect]
     Active Substance: ESTROGENS, CONJUGATED\MEDROXYPROGESTERONE ACETATE
     Indication: Hot flush
     Dates: start: 20220215, end: 20240606
  2. PREMPRO [Suspect]
     Active Substance: ESTROGENS, CONJUGATED\MEDROXYPROGESTERONE ACETATE
     Indication: Night sweats
  3. PREMPRO [Suspect]
     Active Substance: ESTROGENS, CONJUGATED\MEDROXYPROGESTERONE ACETATE
     Indication: Menopausal symptoms
  4. LOW DOSE ASPIRIN [Concomitant]
     Active Substance: ASPIRIN
  5. FARXIGA [Concomitant]
     Active Substance: DAPAGLIFLOZIN PROPANEDIOL
  6. DULOXETINE [Concomitant]
     Active Substance: DULOXETINE
  7. OMEPRAZOLE [Concomitant]
     Active Substance: OMEPRAZOLE
  8. ROSUVASTATIN [Concomitant]
     Active Substance: ROSUVASTATIN
  9. TRULICITY [Concomitant]
     Active Substance: DULAGLUTIDE
  10. COSENTYX [Concomitant]
     Active Substance: SECUKINUMAB
  11. ATROVENT [Concomitant]
     Active Substance: IPRATROPIUM BROMIDE
  12. COMPAZINE [Concomitant]
     Active Substance: PROCHLORPERAZINE MALEATE
  13. ADVAIR HFA [Concomitant]
     Active Substance: FLUTICASONE PROPIONATE\SALMETEROL XINAFOATE
  14. Blood Glucose Monitor Test strips [Concomitant]
  15. lancits [Concomitant]
  16. VITAMINS [Concomitant]
     Active Substance: VITAMINS
  17. OMEGA-3 ACIDS [Concomitant]
     Active Substance: OMEGA-3 FATTY ACIDS
  18. VITAMIN D [Concomitant]
     Active Substance: VITAMIN D NOS
  19. MELATONIN [Concomitant]
     Active Substance: MELATONIN
  20. FOLIC ACID [Concomitant]
     Active Substance: FOLIC ACID
  21. DIETARY SUPPLEMENT\HERBALS\MILK THISTLE [Concomitant]
     Active Substance: MILK THISTLE
  22. MAGNESIUM OXIDE [Concomitant]
     Active Substance: MAGNESIUM OXIDE

REACTIONS (6)
  - Migraine [None]
  - Dysstasia [None]
  - Fall [None]
  - Cerebrovascular accident [None]
  - Thrombosis [None]
  - Ventricular fibrillation [None]

NARRATIVE: CASE EVENT DATE: 20240605
